FAERS Safety Report 6161421-2 (Version None)
Quarter: 2009Q2

REPORT INFORMATION
  Report Type: 
  Country: None (occurrence: None)
  Receive Date: 20090421
  Receipt Date: 20070925
  Transmission Date: 20091009
  Serious: Yes (Hospitalization, Other)
  Sender: FDA-Public Use
  Company Number: US-ASTRAZENECA-2006UW22595

PATIENT
  Age: 27 Year
  Sex: Male
  Weight: 65.3 kg

DRUGS (41)
  1. SEROQUEL [Suspect]
     Indication: BIPOLAR DISORDER
     Dosage: 100-1600 MG
     Route: 048
     Dates: start: 20010329
  2. SEROQUEL [Suspect]
     Indication: DEPRESSION
     Dosage: 100-1600 MG
     Route: 048
     Dates: start: 20010329
  3. PROTONIX [Concomitant]
  4. LITHIUM CARBONATE [Concomitant]
  5. TRAZODONE [Concomitant]
  6. GLARGINE INSULIN [Concomitant]
  7. DEPAKOTE [Concomitant]
  8. BENADRYL [Concomitant]
  9. HALDOL [Concomitant]
  10. LAMICTAL [Concomitant]
  11. ZOLOFT [Concomitant]
  12. ABILIFY [Concomitant]
  13. COGENTIN [Concomitant]
  14. DOXEPIN HCL [Concomitant]
  15. ATIVAN [Concomitant]
  16. TEGRETOL [Concomitant]
  17. PROZAC [Concomitant]
  18. TRILEPTAL [Concomitant]
  19. LIPITOR [Concomitant]
  20. TRICOR [Concomitant]
  21. PREVACID [Concomitant]
  22. LISINOPRIL [Concomitant]
  23. DARVOCET [Concomitant]
  24. GEMFIBROZIL [Concomitant]
  25. DIOVAN [Concomitant]
  26. INSULIN HUMAN REGULAR [Concomitant]
  27. PRILOSEC [Concomitant]
  28. VICODIN [Concomitant]
  29. OXYCONTIN [Concomitant]
  30. REMERON [Concomitant]
  31. INDERAL [Concomitant]
  32. WELLBUTRIN [Concomitant]
  33. LITHOBID [Concomitant]
  34. DILAUDID [Concomitant]
  35. SERZONE [Concomitant]
  36. CATAPRES [Concomitant]
  37. KLONOPIN [Concomitant]
  38. ZYPREXA [Concomitant]
  39. ZYRTEC [Concomitant]
  40. XANAX [Concomitant]
  41. DEMEROL [Concomitant]

REACTIONS (32)
  - ABDOMINAL PAIN [None]
  - ABDOMINAL PAIN UPPER [None]
  - ARTHROPOD BITE [None]
  - BLOOD GLUCOSE DECREASED [None]
  - CELLULITIS [None]
  - COMA [None]
  - DEHYDRATION [None]
  - DIABETES MELLITUS [None]
  - DIABETIC GASTROPARESIS [None]
  - DIABETIC KETOACIDOSIS [None]
  - DYSPEPSIA [None]
  - GALLBLADDER DISORDER [None]
  - GASTRITIS [None]
  - HYPERGLYCAEMIA [None]
  - HYPERKALAEMIA [None]
  - HYPERPHOSPHATAEMIA [None]
  - HYPERTRIGLYCERIDAEMIA [None]
  - HYPOVOLAEMIA [None]
  - IRON DEFICIENCY ANAEMIA [None]
  - LEUKOCYTOSIS [None]
  - LIVER FUNCTION TEST [None]
  - OESOPHAGITIS [None]
  - PANCREATITIS [None]
  - PNEUMONIA [None]
  - RENAL FAILURE ACUTE [None]
  - RENAL FAILURE CHRONIC [None]
  - SCHIZOPHRENIA [None]
  - SINUSITIS [None]
  - THERAPEUTIC AGENT TOXICITY [None]
  - THYROID NEOPLASM [None]
  - UPPER GASTROINTESTINAL HAEMORRHAGE [None]
  - VOMITING [None]
